FAERS Safety Report 18718999 (Version 2)
Quarter: 2021Q4

REPORT INFORMATION
  Report Type: Spontaneous
  Country: GB (occurrence: GB)
  Receive Date: 20210108
  Receipt Date: 20211021
  Transmission Date: 20220303
  Serious: Yes (Congenital Anomaly, Other)
  Sender: FDA-Public Use
  Company Number: GB-CIPLA (EU) LIMITED-2020GB09540

PATIENT
  Age: 19 Year
  Sex: Male
  Weight: 44 kg

DRUGS (14)
  1. FLUOXETINE [Interacting]
     Active Substance: FLUOXETINE HYDROCHLORIDE
     Indication: Product used for unknown indication
     Dosage: 36 MILLIGRAM, QD
     Route: 065
  2. EPIDIOLEX [Interacting]
     Active Substance: CANNABIDIOL
     Indication: Epilepsy
     Dosage: 6 MILLIGRAM/KILOGRAM, UNK
     Route: 048
     Dates: start: 20200916, end: 20200930
  3. EPIDIOLEX [Interacting]
     Active Substance: CANNABIDIOL
     Dosage: 8 MILLIGRAM/KILOGRAM, UNK
     Route: 048
     Dates: start: 20200930, end: 20201014
  4. EPIDIOLEX [Interacting]
     Active Substance: CANNABIDIOL
     Dosage: 4 MILLIGRAM/KILOGRAM
     Route: 048
     Dates: start: 20200902, end: 20200916
  5. EPIDIOLEX [Interacting]
     Active Substance: CANNABIDIOL
     Dosage: 500 MILLIGRAM, QD
     Route: 048
     Dates: start: 2020, end: 20201202
  6. EPIDIOLEX [Interacting]
     Active Substance: CANNABIDIOL
     Dosage: 400 MILLIGRAM, QD
     Route: 048
     Dates: start: 20201014, end: 2020
  7. CHLORAL HYDRATE [Concomitant]
     Active Substance: CHLORAL HYDRATE
     Indication: Product used for unknown indication
     Dosage: UNK
     Route: 065
  8. CLOBAZAM [Concomitant]
     Active Substance: CLOBAZAM
     Indication: Product used for unknown indication
     Dosage: 4 MILLIGRAM, QD
     Route: 065
  9. CLOBAZAM [Concomitant]
     Active Substance: CLOBAZAM
     Dosage: 8 MILLIGRAM, QD
     Route: 065
  10. CHOLECALCIFEROL [Concomitant]
     Active Substance: CHOLECALCIFEROL
     Indication: Product used for unknown indication
     Dosage: UNK
     Route: 065
  11. ETHOSUXIMIDE [Concomitant]
     Active Substance: ETHOSUXIMIDE
     Indication: Product used for unknown indication
     Dosage: UNK
     Route: 065
  12. LANSOPRAZOLE [Concomitant]
     Active Substance: LANSOPRAZOLE
     Indication: Product used for unknown indication
     Dosage: UNK
     Route: 065
  13. PHENOBARBITAL [Concomitant]
     Active Substance: PHENOBARBITAL
     Indication: Product used for unknown indication
     Dosage: UNK
     Route: 065
  14. TOPIRAMATE [Concomitant]
     Active Substance: TOPIRAMATE
     Indication: Product used for unknown indication
     Dosage: UNK
     Route: 065

REACTIONS (5)
  - Social avoidant behaviour [Unknown]
  - Decreased appetite [Recovered/Resolved]
  - Diarrhoea [Recovered/Resolved]
  - Somnolence [Recovered/Resolved]
  - Drug interaction [Unknown]

NARRATIVE: CASE EVENT DATE: 20200903
